FAERS Safety Report 4950882-X (Version None)
Quarter: 2006Q1

REPORT INFORMATION
  Report Type: 
  Country: None (occurrence: None)
  Receive Date: 20060315
  Receipt Date: 20060301
  Transmission Date: 20060701
  Serious: Yes (Other)
  Sender: FDA-Public Use
  Company Number: US017029

PATIENT
  Age: 72 Year
  Sex: Male

DRUGS (5)
  1. TRISENOX [Suspect]
     Indication: ACUTE PROMYELOCYTIC LEUKAEMIA
     Dosage: 6.6 MG QD INTRAVENOUS DRIP
     Route: 041
     Dates: start: 20050209, end: 20050405
  2. BIAPENEM [Concomitant]
  3. TOSUFLOXACIN TOSILATE [Concomitant]
  4. FLUCONAZOLE [Concomitant]
  5. FAMOTIDINE [Concomitant]

REACTIONS (6)
  - ALANINE AMINOTRANSFERASE INCREASED [None]
  - ASPARTATE AMINOTRANSFERASE INCREASED [None]
  - BLOOD LACTATE DEHYDROGENASE INCREASED [None]
  - GAMMA-GLUTAMYLTRANSFERASE INCREASED [None]
  - HEPATIC FUNCTION ABNORMAL [None]
  - HYPOKALAEMIA [None]
